FAERS Safety Report 7610296 (Version 2)
Quarter: 2018Q1

REPORT INFORMATION
  Report Type: Spontaneous
  Country: US (occurrence: US)
  Receive Date: 20100928
  Receipt Date: 20180119
  Transmission Date: 20180509
  Serious: Yes (Hospitalization)
  Sender: FDA-Public Use
  Company Number: PHHY2010US61328

PATIENT
  Age: 22 Year
  Sex: Female

DRUGS (1)
  1. GLEEVEC [Suspect]
     Active Substance: IMATINIB MESYLATE
     Indication: HYPEREOSINOPHILIC SYNDROME
     Dosage: 400 MG, QD
     Route: 048

REACTIONS (6)
  - Microangiopathic haemolytic anaemia [Unknown]
  - Anuria [Unknown]
  - Thrombocytopenia [Recovered/Resolved]
  - Thrombotic thrombocytopenic purpura [Recovered/Resolved]
  - Thrombotic microangiopathy [Unknown]
  - Acute kidney injury [Not Recovered/Not Resolved]
